FAERS Safety Report 6923988-3 (Version None)
Quarter: 2010Q3

REPORT INFORMATION
  Report Type: 
  Country: None (occurrence: None)
  Receive Date: 20100813
  Receipt Date: 20100805
  Transmission Date: 20110219
  Serious: Yes (Hospitalization)
  Sender: FDA-Public Use
  Company Number: NO-ELI_LILLY_AND_COMPANY-NO201008000083

PATIENT
  Age: 34 Year
  Sex: Male

DRUGS (4)
  1. ZYPADHERA [Suspect]
     Dosage: 300 MG, WEEKLY (1/W)
     Route: 030
  2. ZYPADHERA [Suspect]
     Dosage: 300 MG, WEEKLY (1/W)
     Route: 030
  3. ZYPADHERA [Suspect]
     Dosage: 300 MG, WEEKLY (1/W)
     Dates: start: 20100729
  4. VITAMINS [Concomitant]

REACTIONS (6)
  - BALANCE DISORDER [None]
  - DIZZINESS [None]
  - FALL [None]
  - SEDATION [None]
  - SOMNOLENCE [None]
  - SYNCOPE [None]
